FAERS Safety Report 18997367 (Version 1)
Quarter: 2021Q1

REPORT INFORMATION
  Report Type: Spontaneous
  Country: JP (occurrence: JP)
  Receive Date: 20210311
  Receipt Date: 20210311
  Transmission Date: 20210420
  Serious: Yes (Other)
  Sender: FDA-Public Use
  Company Number: JP-MYLANLABS-2021M1012965

PATIENT
  Age: 66 Year
  Sex: Male

DRUGS (10)
  1. OMEPRAZOLE. [Suspect]
     Active Substance: OMEPRAZOLE
     Indication: PRODUCT USED FOR UNKNOWN INDICATION
     Route: 065
  2. FOLINIC ACID [Suspect]
     Active Substance: LEUCOVORIN
     Indication: COLON CANCER METASTATIC
     Route: 065
  3. IRINOTECAN [Suspect]
     Active Substance: IRINOTECAN
     Indication: COLON CANCER METASTATIC
     Route: 065
  4. PANITUMUMAB [Suspect]
     Active Substance: PANITUMUMAB
     Indication: COLON CANCER METASTATIC
     Route: 065
  5. OXALIPLATIN. [Suspect]
     Active Substance: OXALIPLATIN
     Indication: COLON CANCER METASTATIC
     Route: 065
  6. GRANISETRON [Suspect]
     Active Substance: GRANISETRON
     Indication: PRODUCT USED FOR UNKNOWN INDICATION
     Route: 065
  7. CEFOPERAZONE + SULBACTAM [Suspect]
     Active Substance: CEFOPERAZONE SODIUM\SULBACTAM
     Indication: PRODUCT USED FOR UNKNOWN INDICATION
     Route: 065
  8. 5?FLUOROURACIL                     /00098801/ [Suspect]
     Active Substance: FLUOROURACIL
     Indication: COLON CANCER METASTATIC
     Route: 065
  9. RAMOSETRON [Suspect]
     Active Substance: RAMOSETRON HYDROCHLORIDE
     Indication: PRODUCT USED FOR UNKNOWN INDICATION
     Route: 065
  10. BEVACIZUMAB. [Suspect]
     Active Substance: BEVACIZUMAB
     Indication: COLON CANCER METASTATIC
     Route: 065

REACTIONS (5)
  - Ascites [Recovered/Resolved]
  - Hepatic steatosis [Recovered/Resolved]
  - Drug-induced liver injury [Recovered/Resolved]
  - Acute hepatic failure [Recovered/Resolved]
  - Liver disorder [Recovered/Resolved]
